FAERS Safety Report 6787707-6 (Version None)
Quarter: 2010Q2

REPORT INFORMATION
  Report Type: 
  Country: None (occurrence: None)
  Receive Date: 20100623
  Receipt Date: 20070815
  Transmission Date: 20101027
  Serious: No
  Sender: FDA-Public Use
  Company Number: US-PFIZER INC-2007067933

PATIENT
  Sex: Female
  Weight: 110 kg

DRUGS (3)
  1. DEPO-PROVERA SUSPENSION/INJ [Suspect]
     Indication: MENSTRUATION IRREGULAR
     Dosage: FIRST INJECTION
     Route: 030
     Dates: start: 20070529, end: 20070529
  2. DEPO-PROVERA SUSPENSION/INJ [Suspect]
     Dosage: MOST RECENT INJECTION
     Route: 030
     Dates: start: 20070815, end: 20070815
  3. VANIQA [Concomitant]

REACTIONS (4)
  - MIGRAINE [None]
  - NAUSEA [None]
  - PHOTOSENSITIVITY REACTION [None]
  - VOMITING [None]
